FAERS Safety Report 25503238 (Version 1)
Quarter: 2025Q3

REPORT INFORMATION
  Report Type: Spontaneous
  Country: GB (occurrence: GB)
  Receive Date: 20250702
  Receipt Date: 20250702
  Transmission Date: 20251020
  Serious: Yes (Hospitalization, Other)
  Sender: TEVA
  Company Number: None

PATIENT
  Age: 72 Year
  Sex: Male
  Weight: 117 kg

DRUGS (3)
  1. BENDROFLUMETHIAZIDE [Suspect]
     Active Substance: BENDROFLUMETHIAZIDE
     Indication: Essential hypertension
     Dosage: TEVA UK
     Route: 065
     Dates: start: 20180208
  2. RAMIPRIL [Suspect]
     Active Substance: RAMIPRIL
     Indication: Essential hypertension
     Dosage: IN THE MORNING
     Route: 065
     Dates: start: 20050421
  3. SPIRONOLACTONE [Suspect]
     Active Substance: SPIRONOLACTONE
     Indication: Essential hypertension
     Dosage: IN THE MORNING
     Route: 065
     Dates: start: 20230811

REACTIONS (1)
  - Acute kidney injury [Recovered/Resolved]

NARRATIVE: CASE EVENT DATE: 20250203
